FAERS Safety Report 7796792-4 (Version None)
Quarter: 2011Q4

REPORT INFORMATION
  Report Type: 
  Country: None (occurrence: None)
  Receive Date: 20111003
  Receipt Date: 20110901
  Transmission Date: 20120403
  Serious: Yes (Hospitalization)
  Sender: FDA-Public Use
  Company Number: JPI-P-016918

PATIENT
  Age: 22 Year
  Sex: Female
  Weight: 57.6068 kg

DRUGS (7)
  1. DIPHENHYDRAMINE HCL [Concomitant]
  2. ZOLPIDEM [Concomitant]
  3. XYREM [Suspect]
     Indication: FIBROMYALGIA
     Dosage: ORAL 9 GM (4.5 GM, 2 IN 1 D), ORAL
     Route: 048
     Dates: start: 20100401
  4. XYREM [Suspect]
     Indication: INSOMNIA
     Dosage: ORAL 9 GM (4.5 GM, 2 IN 1 D), ORAL
     Route: 048
     Dates: start: 20100401
  5. DULOXETINE HYDROCHLORIDE [Concomitant]
  6. PROPRANOLOL [Concomitant]
  7. MIRTAZAPINE [Concomitant]

REACTIONS (3)
  - CONVULSION [None]
  - APNOEA [None]
  - AMNESIA [None]
